FAERS Safety Report 8463904-9 (Version None)
Quarter: 2012Q2

REPORT INFORMATION
  Report Type: 
  Country: None (occurrence: None)
  Receive Date: 20120625
  Receipt Date: 20120615
  Transmission Date: 20120825
  Serious: Yes (Hospitalization)
  Sender: FDA-Public Use
  Company Number: GB-JNJFOC-20120604968

PATIENT
  Sex: Male
  Weight: 53.7 kg

DRUGS (5)
  1. REMICADE [Suspect]
     Indication: CROHN'S DISEASE
     Route: 042
     Dates: start: 20080911
  2. SODIUM CHLORIDE [Concomitant]
  3. HUMIRA [Suspect]
     Indication: PRODUCT USED FOR UNKNOWN INDICATION
     Dates: start: 20090708
  4. AZATHIOPRINE [Concomitant]
  5. CALCICHEW D3 [Concomitant]

REACTIONS (1)
  - BRAIN STEM INFARCTION [None]
